FAERS Safety Report 6056730-1 (Version None)
Quarter: 2009Q1

REPORT INFORMATION
  Report Type: 
  Country: None (occurrence: None)
  Receive Date: 20090129
  Receipt Date: 20090119
  Transmission Date: 20090719
  Serious: Yes (Hospitalization)
  Sender: FDA-Public Use
  Company Number: US-BIOGENIDEC-2008BI033091

PATIENT
  Age: 36 Year
  Sex: Female
  Weight: 88 kg

DRUGS (2)
  1. AVONEX [Suspect]
     Indication: MULTIPLE SCLEROSIS
     Route: 030
     Dates: start: 20080310
  2. MEDICATION (NOS) [Concomitant]
     Indication: DEPRESSION
     Route: 048
     Dates: start: 20081204

REACTIONS (6)
  - CLOSTRIDIAL INFECTION [None]
  - DEHYDRATION [None]
  - MULTIPLE SCLEROSIS RELAPSE [None]
  - NAUSEA [None]
  - TOOTH ABSCESS [None]
  - VOMITING [None]
